FAERS Safety Report 13775007 (Version 4)
Quarter: 2017Q3

REPORT INFORMATION
  Report Type: Spontaneous
  Country: CA (occurrence: CA)
  Receive Date: 20170720
  Receipt Date: 20170811
  Transmission Date: 20171127
  Serious: Yes (Other)
  Sender: FDA-Public Use
  Company Number: CA-SA-2017SA129332

PATIENT
  Sex: Female

DRUGS (6)
  1. SOLOSTAR [Suspect]
     Active Substance: DEVICE
     Indication: DIABETES MELLITUS
  2. SOLOSTAR [Suspect]
     Active Substance: DEVICE
     Indication: DIABETES MELLITUS
  3. LANTUS SOLOSTAR [Suspect]
     Active Substance: INSULIN GLARGINE
     Indication: DIABETES MELLITUS
     Route: 058
  4. LANTUS SOLOSTAR [Suspect]
     Active Substance: INSULIN GLARGINE
     Indication: DIABETES MELLITUS
     Route: 058
  5. LANTUS SOLOSTAR [Suspect]
     Active Substance: INSULIN GLARGINE
     Indication: DIABETES MELLITUS
     Route: 058
  6. LANTUS SOLOSTAR [Suspect]
     Active Substance: INSULIN GLARGINE
     Indication: DIABETES MELLITUS
     Route: 058

REACTIONS (4)
  - Hypoglycaemia [Recovered/Resolved]
  - Diabetic ketoacidosis [Recovered/Resolved]
  - Product use issue [Unknown]
  - Drug ineffective [Unknown]
